FAERS Safety Report 10770351 (Version 4)
Quarter: 2015Q3

REPORT INFORMATION
  Report Type: Spontaneous
  Country: US (occurrence: PR)
  Receive Date: 20150206
  Receipt Date: 20150827
  Transmission Date: 20151125
  Serious: Yes (Hospitalization, Other)
  Sender: FDA-Public Use
  Company Number: PR-TEVA-537878USA

PATIENT
  Age: 71 Year
  Sex: Female

DRUGS (8)
  1. FEXOFENADINE [Concomitant]
     Active Substance: FEXOFENADINE\FEXOFENADINE HYDROCHLORIDE
  2. SYNTHROID [Concomitant]
     Active Substance: LEVOTHYROXINE SODIUM
  3. ALENDRONIC ACID [Suspect]
     Active Substance: ALENDRONIC ACID
     Route: 065
  4. REFRESH [Concomitant]
     Active Substance: UNSPECIFIED INGREDIENT
     Dosage: 0.5-1%
  5. RESTASIS [Concomitant]
     Active Substance: CYCLOSPORINE
     Dosage: 2 GTT DAILY; OU
  6. NAPROXEN. [Concomitant]
     Active Substance: NAPROXEN
  7. LOSARTAN. [Concomitant]
     Active Substance: LOSARTAN
  8. BRIMONIDINE [Concomitant]
     Active Substance: BRIMONIDINE TARTRATE
     Dosage: 2 GTT DAILY; OU

REACTIONS (12)
  - Malaise [Unknown]
  - Dry eye [Unknown]
  - Adverse event [Unknown]
  - Uveitis [Recovered/Resolved]
  - Glaucoma [Unknown]
  - Cataract [Unknown]
  - Infection [Unknown]
  - Eye infection [Unknown]
  - Hepatic cirrhosis [Not Recovered/Not Resolved]
  - Hepatocellular carcinoma [Not Recovered/Not Resolved]
  - Eye pain [Recovered/Resolved]
  - Vision blurred [Recovered/Resolved]

NARRATIVE: CASE EVENT DATE: 20140804
